FAERS Safety Report 7960546-6 (Version None)
Quarter: 2011Q4

REPORT INFORMATION
  Report Type: 
  Country: None (occurrence: None)
  Receive Date: 20111206
  Receipt Date: 20111130
  Transmission Date: 20120403
  Serious: Yes (Disabling)
  Sender: FDA-Public Use
  Company Number: PHHY2011CH105963

PATIENT
  Age: 64 Year
  Sex: Male

DRUGS (8)
  1. TAMSULOSIN HCL [Concomitant]
     Dosage: UNK UKN, UNK
  2. INSULIN [Concomitant]
  3. ZOMETA [Suspect]
     Indication: METASTASES TO BONE
     Dosage: UNK UKN, UNK
     Route: 041
     Dates: start: 20100101
  4. CONCOR [Concomitant]
  5. MS CONTIN [Concomitant]
     Dosage: UNK UKN, UNK
  6. PANTOPRAZOLE SODIUM [Concomitant]
  7. HYGROTON [Suspect]
     Dosage: UNK
  8. METFORMIN HCL [Concomitant]

REACTIONS (3)
  - OSTEONECROSIS OF JAW [None]
  - BACTERIAL INFECTION [None]
  - OSTEOMYELITIS [None]
